FAERS Safety Report 18485431 (Version 1)
Quarter: 2020Q4

REPORT INFORMATION
  Report Type: Spontaneous
  Country: US (occurrence: US)
  Receive Date: 20201110
  Receipt Date: 20201110
  Transmission Date: 20210114
  Serious: Yes (Other)
  Sender: FDA-Public Use
  Company Number: None

PATIENT
  Age: 34 Year
  Sex: Female
  Weight: 112.5 kg

DRUGS (1)
  1. SULFAMETHOXAZOLE/TRIMETHOPRIM DS 800-160 TAB [Suspect]
     Active Substance: SULFAMETHOXAZOLE\TRIMETHOPRIM
     Indication: FOLLICULITIS
     Dosage: ?          QUANTITY:1 TABLET(S);?
     Route: 048
     Dates: start: 20201031, end: 20201106

REACTIONS (5)
  - Disturbance in attention [None]
  - Fatigue [None]
  - Lethargy [None]
  - Feeling abnormal [None]
  - Memory impairment [None]

NARRATIVE: CASE EVENT DATE: 20201105
